FAERS Safety Report 6468379-7 (Version None)
Quarter: 2009Q4

REPORT INFORMATION
  Report Type: 
  Country: None (occurrence: None)
  Receive Date: 20091203
  Receipt Date: 20091123
  Transmission Date: 20100525
  Serious: Yes (Hospitalization)
  Sender: FDA-Public Use
  Company Number: US-BIOGENIDEC-2009BI035180

PATIENT
  Age: 50 Year
  Sex: Male

DRUGS (3)
  1. TYSABRI [Suspect]
     Indication: MULTIPLE SCLEROSIS
     Route: 042
     Dates: start: 20090611, end: 20090101
  2. ANTI-DEPRESSANT (NOS) [Concomitant]
  3. CALCIUM [Concomitant]

REACTIONS (3)
  - DRUG INEFFECTIVE [None]
  - MULTIPLE SCLEROSIS [None]
  - URINARY TRACT INFECTION [None]
